FAERS Safety Report 9149858 (Version 1)
Quarter: 2013Q1

REPORT INFORMATION
  Report Type: Report from Study
  Country: GB (occurrence: GB)
  Receive Date: 20130308
  Receipt Date: 20130308
  Transmission Date: 20140127
  Serious: Yes (Hospitalization)
  Sender: FDA-Public Use
  Company Number: GB-ROCHE-1144961

PATIENT
  Age: 70 Year
  Sex: Male
  Weight: 77 kg

DRUGS (10)
  1. BEVACIZUMAB [Suspect]
     Indication: GASTRIC CANCER
     Dosage: MOST RECENT DOSE 575MG ON 09/JUL/2012
     Route: 042
     Dates: start: 20120521
  2. EPIRUBICIN [Suspect]
     Indication: GASTRIC CANCER
     Dosage: MOST RECENT DOSE 96MG ON 09/JUL/2012
     Route: 042
     Dates: start: 20120521
  3. CISPLATIN [Suspect]
     Indication: GASTRIC CANCER
     Dosage: MOST RECENT DOSE 115MG ON 09/JUL/2012
     Route: 042
     Dates: start: 20120521
  4. CAPECITABINE [Suspect]
     Indication: GASTRIC CANCER
     Dosage: MOST RECENT DOSE 2500MG ON 09/JUL/2012
     Route: 048
     Dates: start: 20120521, end: 20120718
  5. METFORMIN [Concomitant]
     Route: 048
  6. AMLODIPINE [Concomitant]
     Route: 048
  7. SIMVASTATIN [Concomitant]
     Route: 048
  8. BENDROFLUAZIDE [Concomitant]
     Route: 048
  9. LANSOPRAZOLE [Concomitant]
     Route: 048
  10. PARACETAMOL [Concomitant]
     Route: 048

REACTIONS (7)
  - Pancreatitis [Recovered/Resolved]
  - Intestinal obstruction [Recovered/Resolved]
  - Neutropenia [Recovered/Resolved]
  - Diarrhoea [Recovered/Resolved]
  - Pyrexia [Recovered/Resolved]
  - Abdominal pain [Recovered/Resolved]
  - Diarrhoea [Recovered/Resolved]
